FAERS Safety Report 9112980 (Version 1)
Quarter: 2013Q1

REPORT INFORMATION
  Report Type: Spontaneous
  Country: US (occurrence: US)
  Receive Date: 20130211
  Receipt Date: 20130211
  Transmission Date: 20140127
  Serious: No
  Sender: FDA-Public Use
  Company Number: US-PFIZER INC-2013050944

PATIENT
  Age: 41 Year
  Sex: Female
  Weight: 77.1 kg

DRUGS (3)
  1. PRISTIQ [Suspect]
     Indication: DEPRESSION
     Dosage: 50 MG,  1X/DAY
     Dates: start: 20130121
  2. DIAZEPAM [Suspect]
     Indication: ANXIETY
     Dosage: HALF OF 5 MG AS NEEDED
  3. THYROLAR [Concomitant]
     Indication: THYROID DISORDER
     Dosage: 150 MG, 1X/DAY

REACTIONS (4)
  - Rash [Not Recovered/Not Resolved]
  - Anxiety [Not Recovered/Not Resolved]
  - Weight decreased [Unknown]
  - Thermal burn [Unknown]
